FAERS Safety Report 12343831 (Version 2)
Quarter: 2016Q2

REPORT INFORMATION
  Report Type: Report from Study
  Country: FR (occurrence: FR)
  Receive Date: 20160507
  Receipt Date: 20160606
  Transmission Date: 20160815
  Serious: Yes (Other)
  Sender: FDA-Public Use
  Company Number: FR-ACCORD-040119

PATIENT
  Age: 43 Year
  Sex: Female

DRUGS (8)
  1. PREDNISONE. [Suspect]
     Active Substance: PREDNISONE
     Indication: IMMUNOSUPPRESSION
     Dosage: 0.5 MG/KG DAILY UNTIL DAY 15, WHICH WAS THEN PROGRESSIVELY TAPERED TO ACHIEVE 5 MG/DAY BY MONTH 3
  2. METHYLPREDNISOLONE. [Concomitant]
     Active Substance: METHYLPREDNISOLONE
     Indication: RENAL TRANSPLANT
     Dosage: 10MG/KG ON DAY 0, 2 MG/KG ON DAY 1, 1 MG/KG ON DAY 2
  3. PROGRAF [Suspect]
     Active Substance: TACROLIMUS\TACROLIMUS ANHYDROUS
     Indication: RENAL TRANSPLANT
     Dosage: 0.1 MG /KG  PRE-TRANSPLANT?ALSO RECEIVED POST TRANSPLANT
  4. MYCOPHENOLIC ACID. [Suspect]
     Active Substance: MYCOPHENOLIC ACID
     Indication: RENAL TRANSPLANT
     Dosage: MMF WAS GIVEN AT 1 G B.I.D. UNTIL POSTOPERATIVE DAY 15 AND THEREAFTER AT 500MG B.I.D.
  5. THYMOGLOBULIN GENZYME [Concomitant]
     Indication: RENAL TRANSPLANT
     Dosage: 1MG/KG
  6. RITUXIMAB [Concomitant]
     Active Substance: RITUXIMAB
     Indication: RENAL TRANSPLANT
     Dosage: ON DAYS 15 AND 30 PRETRANSPLANT.
  7. IMMUNOGLOBULIN G HUMAN [Concomitant]
     Active Substance: HUMAN IMMUNOGLOBULIN G
  8. SULFAMETHOXAZOLE/TRIMETHOPRIM [Concomitant]
     Indication: PROPHYLAXIS
     Dosage: 400 MG/80 MG EVERY OTHER DAY

REACTIONS (3)
  - Renal tubular atrophy [Unknown]
  - BK virus infection [Recovered/Resolved]
  - Glomerulonephropathy [Unknown]
